FAERS Safety Report 14312758 (Version 1)
Quarter: 2017Q4

REPORT INFORMATION
  Report Type: Spontaneous
  Country: DE (occurrence: DE)
  Receive Date: 20171221
  Receipt Date: 20171221
  Transmission Date: 20180321
  Serious: Yes (Other)
  Sender: FDA-Public Use
  Company Number: PHHY2017DE189275

PATIENT
  Sex: Female
  Weight: 48 kg

DRUGS (4)
  1. NOVAMIN (PROCHLORPERAZINE MALEATE) [Concomitant]
     Active Substance: PROCHLORPERAZINE MALEATE
     Indication: HYPOTHYROIDISM
     Dosage: 30 ML, QD
     Route: 048
     Dates: start: 20170301
  2. VOTRIENT [Suspect]
     Active Substance: PAZOPANIB HYDROCHLORIDE
     Indication: METASTATIC RENAL CELL CARCINOMA
     Dosage: 600 MG, QD
     Route: 048
     Dates: start: 20170724
  3. TRAMADOL. [Concomitant]
     Active Substance: TRAMADOL
     Indication: HYPOTHYROIDISM
     Dosage: 100 MG, BID
     Route: 048
     Dates: start: 20170301
  4. L-THYROXIN HENNING [Concomitant]
     Active Substance: LEVOTHYROXINE SODIUM
     Indication: HYPOTHYROIDISM
     Dosage: 100 MG, QD
     Route: 048
     Dates: start: 19860101

REACTIONS (2)
  - Ageusia [Not Recovered/Not Resolved]
  - Hypertension [Not Recovered/Not Resolved]

NARRATIVE: CASE EVENT DATE: 20170728
